FAERS Safety Report 9473259 (Version 1)
Quarter: 2013Q3

REPORT INFORMATION
  Report Type: Spontaneous
  Country: US (occurrence: None)
  Receive Date: 20130820
  Receipt Date: 20130820
  Transmission Date: 20140515
  Serious: Yes (Other)
  Sender: FDA-Public Use
  Company Number: 2013P1017476

PATIENT
  Age: 60 Year
  Sex: Male
  Weight: 79.38 kg

DRUGS (4)
  1. LISINOPRIL [Suspect]
     Indication: HYPERTENSION
     Route: 048
     Dates: start: 201203, end: 201301
  2. MULTIVITAMIN [Concomitant]
  3. VITAMIN D3 [Concomitant]
  4. FISH OIL [Concomitant]

REACTIONS (6)
  - Retinal tear [None]
  - Sinus disorder [None]
  - Deafness unilateral [None]
  - Nerve injury [None]
  - Vitreous floaters [None]
  - Photopsia [None]
